FAERS Safety Report 19736780 (Version 1)
Quarter: 2021Q3

REPORT INFORMATION
  Report Type: Spontaneous
  Country: US (occurrence: US)
  Receive Date: 20210823
  Receipt Date: 20210823
  Transmission Date: 20211014
  Serious: No
  Sender: FDA-Public Use
  Company Number: US-TEVA-2021-US-1943644

PATIENT
  Age: 62 Year
  Sex: Female
  Weight: 62.6 kg

DRUGS (16)
  1. VITAMIN D2 [Concomitant]
     Active Substance: ERGOCALCIFEROL
  2. TRIMETHOPRIM. [Concomitant]
     Active Substance: TRIMETHOPRIM
  3. PREDNISONE. [Concomitant]
     Active Substance: PREDNISONE
  4. CYMBALTA [Concomitant]
     Active Substance: DULOXETINE HYDROCHLORIDE
  5. AMBIEN [Concomitant]
     Active Substance: ZOLPIDEM TARTRATE
     Dosage: 10 MG AT NIGHT
  6. LORAZEPAM. [Concomitant]
     Active Substance: LORAZEPAM
  7. LEVOTHYROXINE. [Concomitant]
     Active Substance: LEVOTHYROXINE
  8. PREVACID [Concomitant]
     Active Substance: LANSOPRAZOLE
  9. AUSTEDO [Suspect]
     Active Substance: DEUTETRABENAZINE
     Indication: TARDIVE DYSKINESIA
     Dosage: 6 MILLIGRAM DAILY;
     Dates: start: 20210725
  10. VITAMIN B12 [Concomitant]
     Active Substance: CYANOCOBALAMIN
  11. OXYCODONE [Concomitant]
     Active Substance: OXYCODONE
  12. PROBIOTIC GUMMIES [Concomitant]
     Indication: DYSPEPSIA
  13. GABAPENTIN. [Concomitant]
     Active Substance: GABAPENTIN
  14. VERAPAMIL ER [Concomitant]
     Active Substance: VERAPAMIL HYDROCHLORIDE
  15. CLONAZEPAM. [Concomitant]
     Active Substance: CLONAZEPAM
  16. MIRALAX [Concomitant]
     Active Substance: POLYETHYLENE GLYCOL 3350
     Indication: DYSPEPSIA

REACTIONS (1)
  - Hepatic enzyme increased [Unknown]

NARRATIVE: CASE EVENT DATE: 2021
